FAERS Safety Report 4853721-0 (Version None)
Quarter: 2005Q4

REPORT INFORMATION
  Report Type: 
  Country: None (occurrence: None)
  Receive Date: 20051212
  Receipt Date: 20051129
  Transmission Date: 20060501
  Serious: Yes (Death, Hospitalization)
  Sender: FDA-Public Use
  Company Number: R301389-PAP-USA

PATIENT
  Age: 82 Year
  Sex: Female

DRUGS (2)
  1. ACIPHEX [Suspect]
     Indication: GASTROOESOPHAGEAL REFLUX DISEASE
     Dosage: ORAL
     Route: 048
     Dates: start: 20000101
  2. DARVON [Concomitant]

REACTIONS (1)
  - CEREBROVASCULAR ACCIDENT [None]
